FAERS Safety Report 6037601-3 (Version None)
Quarter: 2009Q1

REPORT INFORMATION
  Report Type: 
  Country: None (occurrence: None)
  Receive Date: 20090114
  Receipt Date: 20090108
  Transmission Date: 20090719
  Serious: Yes (Hospitalization, Other)
  Sender: FDA-Public Use
  Company Number: US-ROXANE LABORATORIES, INC.-2009-RO-00038RO

PATIENT
  Age: 59 Year
  Sex: Female

DRUGS (12)
  1. LITHIUM CARBONATE [Suspect]
     Indication: BIPOLAR DISORDER
  2. LITHIUM CITRATE [Suspect]
     Dosage: 600MG
  3. LITHIUM CITRATE [Suspect]
     Dosage: 900MG
  4. ARIPIPRAZOLE [Suspect]
     Dosage: 15MG
  5. QUETIAPINE FUMARATE [Suspect]
     Indication: PSYCHOTIC DISORDER
     Dosage: 50MG
  6. SIMVASTATIN [Suspect]
     Dosage: 40MG
  7. ASPIRIN [Suspect]
     Dosage: 81MG
  8. RISPERIDONE [Concomitant]
     Indication: PSYCHOTIC DISORDER
     Dosage: 2MG
  9. RISPERIDONE [Concomitant]
  10. ZOLPIDEM [Concomitant]
     Indication: PSYCHOTIC DISORDER
     Dosage: 10MG
  11. ZOLPIDEM [Concomitant]
     Indication: INSOMNIA
  12. METHIMAZOLE [Concomitant]
     Indication: HYPERTHYROIDISM
     Dosage: 10MG

REACTIONS (5)
  - HYPERTHYROIDISM [None]
  - HYPOTHYROIDISM [None]
  - MANIA [None]
  - OEDEMA PERIPHERAL [None]
  - THERAPEUTIC AGENT TOXICITY [None]
